FAERS Safety Report 5847456-5 (Version None)
Quarter: 2008Q3

REPORT INFORMATION
  Report Type: 
  Country: None (occurrence: None)
  Receive Date: 20080813
  Receipt Date: 20080728
  Transmission Date: 20090109
  Serious: Yes (Death, Hospitalization)
  Sender: FDA-Public Use
  Company Number: GB-DEXPHARM-20080871

PATIENT
  Age: 76 Year
  Sex: Male

DRUGS (6)
  1. ASPIRIN [Suspect]
     Dosage: ^1 DAYS^ ( 75 MEQ MILLIEQUIVALENT(S), 1 IN 1 DAY ), ORAL
     Route: 048
     Dates: start: 20040101
  2. DICLOFENAC [Suspect]
     Dosage: 1 DAYS^, ORAL
     Route: 048
     Dates: start: 20050101
  3. NITROGLYCERIN [Suspect]
     Dosage: AS NECESSARY{/400?G MICROGRAM(S)}
  4. GO TENIDONE [Concomitant]
  5. RAMIPRIL [Concomitant]
  6. SIMVASTATIN [Concomitant]

REACTIONS (5)
  - ABDOMINAL PAIN [None]
  - DRUG INTERACTION [None]
  - FALL [None]
  - GASTROINTESTINAL HAEMORRHAGE [None]
  - PROSTATE CANCER [None]
